FAERS Safety Report 7562958-1 (Version None)
Quarter: 2011Q2

REPORT INFORMATION
  Report Type: 
  Country: None (occurrence: None)
  Receive Date: 20110622
  Receipt Date: 20110616
  Transmission Date: 20111010
  Serious: Yes (Death)
  Sender: FDA-Public Use
  Company Number: JP-PFIZER INC-2011132827

PATIENT

DRUGS (1)
  1. RIFABUTIN [Suspect]
     Indication: PULMONARY TUBERCULOSIS
     Route: 048

REACTIONS (1)
  - TUBERCULOSIS [None]
